FAERS Safety Report 8896399 (Version 1)
Quarter: 2012Q4

REPORT INFORMATION
  Report Type: Spontaneous
  Country: US (occurrence: None)
  Receive Date: 20121031
  Receipt Date: 20121031
  Transmission Date: 20130627
  Serious: Yes (Other)
  Sender: FDA-Public Use
  Company Number: FK201203190

PATIENT
  Age: 45 Year
  Sex: Female

DRUGS (3)
  1. OXALIPLATIN [Suspect]
     Indication: COLORECTAL CANCER
  2. FLUOROURACIL (FLUOROURACIL) [Concomitant]
  3. FOLINIC ACID (FOLINIC ACID) [Concomitant]

REACTIONS (5)
  - Portal hypertension [None]
  - Gastric varices haemorrhage [None]
  - Anaemia [None]
  - Upper gastrointestinal haemorrhage [None]
  - Ascites [None]
